FAERS Safety Report 16941166 (Version 1)
Quarter: 2019Q4

REPORT INFORMATION
  Report Type: Spontaneous
  Country: ZA (occurrence: US)
  Receive Date: 20191021
  Receipt Date: 20191021
  Transmission Date: 20200122
  Serious: Yes (Other)
  Sender: FDA-Public Use
  Company Number: ZA-ALVOGEN-2019-ALVOGEN-100542

PATIENT
  Sex: Male

DRUGS (1)
  1. ZESTORETIC [Suspect]
     Active Substance: HYDROCHLOROTHIAZIDE\LISINOPRIL
     Indication: HYPERTENSION
     Dosage: HYDROCHLOROTHIAZIDE: 20.0MG LISINOPRIL: 12.5MG
     Route: 048

REACTIONS (1)
  - Myocardial infarction [Unknown]
